FAERS Safety Report 18778197 (Version 1)
Quarter: 2021Q1

REPORT INFORMATION
  Report Type: Spontaneous
  Country: US (occurrence: US)
  Receive Date: 20210123
  Receipt Date: 20210123
  Transmission Date: 20210419
  Serious: Yes (Hospitalization, Other)
  Sender: FDA-Public Use
  Company Number: US-CPL-002112

PATIENT
  Age: 74 Year
  Sex: Male

DRUGS (3)
  1. GEMFIBROZIL. [Suspect]
     Active Substance: GEMFIBROZIL
     Indication: HYPERLIPIDAEMIA
  2. ROSUVASTATIN/ROSUVASTATIN CALCIUM [Suspect]
     Active Substance: ROSUVASTATIN CALCIUM
     Indication: HYPERLIPIDAEMIA
  3. ATORVASTATIN [Suspect]
     Active Substance: ATORVASTATIN
     Indication: HYPERLIPIDAEMIA
     Dosage: HIGH?DOSE

REACTIONS (6)
  - Renal tubular necrosis [Unknown]
  - Rhabdomyolysis [Unknown]
  - Metabolic acidosis [Unknown]
  - Acute kidney injury [Unknown]
  - Encephalopathy [Unknown]
  - Necrotising myositis [Unknown]
